FAERS Safety Report 8477426-2 (Version None)
Quarter: 2012Q2

REPORT INFORMATION
  Report Type: 
  Country: None (occurrence: None)
  Receive Date: 20120629
  Receipt Date: 20120622
  Transmission Date: 20120825
  Serious: Yes (Hospitalization, Other)
  Sender: FDA-Public Use
  Company Number: PHHY2012MX045114

PATIENT
  Sex: Male

DRUGS (5)
  1. EXFORGE [Suspect]
     Indication: HYPERTENSION
     Dosage: 1 DF(160 MG VALS AND 5 MG AMLO), ONCE A DAY
     Dates: start: 20120201
  2. ACETYLSALICYLIC ACID SRT [Concomitant]
     Dosage: 0.5 DF, BY DAY
     Dates: start: 20110501
  3. METOPROLOL SUCCINATE [Concomitant]
     Indication: HYPERTENSION
     Dosage: 0.5 DF, UNK
     Dates: start: 20050501
  4. JANUMET [Concomitant]
     Indication: DIABETES MELLITUS
     Dosage: TWICE A DAY
     Dates: start: 20120201
  5. NPH INSULIN [Concomitant]
     Indication: DIABETES MELLITUS
     Dosage: 32 IU IN THE MORNING AND 20 IU AT NIGHT
     Dates: start: 20010101

REACTIONS (8)
  - DYSURIA [None]
  - PROSTATOMEGALY [None]
  - HAEMORRHAGE [None]
  - ANAEMIA [None]
  - DIABETES MELLITUS INADEQUATE CONTROL [None]
  - BENIGN PROSTATIC HYPERPLASIA [None]
  - URINARY TRACT INFECTION [None]
  - STRESS [None]
